FAERS Safety Report 15307392 (Version 1)
Quarter: 2018Q3

REPORT INFORMATION
  Report Type: Spontaneous
  Country: US (occurrence: US)
  Receive Date: 20180822
  Receipt Date: 20180822
  Transmission Date: 20181010
  Serious: No
  Sender: FDA-Public Use
  Company Number: US-BAYER-2018-152650

PATIENT
  Sex: Female

DRUGS (1)
  1. ALEVE [Suspect]
     Active Substance: NAPROXEN SODIUM
     Indication: BACK PAIN
     Dosage: UNK

REACTIONS (8)
  - Throat irritation [Unknown]
  - Dyspepsia [Unknown]
  - Dyspnoea [Unknown]
  - Chest pain [Unknown]
  - Discomfort [Unknown]
  - Foreign body in respiratory tract [Unknown]
  - Oropharyngeal pain [Unknown]
  - Emotional distress [Unknown]

NARRATIVE: CASE EVENT DATE: 20180812
